FAERS Safety Report 18839171 (Version 2)
Quarter: 2021Q2

REPORT INFORMATION
  Report Type: Report from Study
  Country: BR (occurrence: BR)
  Receive Date: 20210203
  Receipt Date: 20210521
  Transmission Date: 20210717
  Serious: Yes (Other)
  Sender: FDA-Public Use
  Company Number: BR-TAKEDA-2021TUS006032

PATIENT
  Age: 3 Year
  Sex: Male
  Weight: 12 kg

DRUGS (2)
  1. HEMO?8R [Suspect]
     Active Substance: ANTIHEMOPHILIC FACTOR, HUMAN RECOMBINANT
     Dosage: UNK
     Route: 042
  2. HEMO?8R [Suspect]
     Active Substance: ANTIHEMOPHILIC FACTOR, HUMAN RECOMBINANT
     Indication: FACTOR VIII DEFICIENCY
     Dosage: 250 INTERNATIONAL UNIT, QOD
     Route: 042
     Dates: start: 20180503

REACTIONS (3)
  - Contusion [Unknown]
  - Anti factor VIII antibody positive [Unknown]
  - Ecchymosis [Unknown]

NARRATIVE: CASE EVENT DATE: 20210513
